FAERS Safety Report 6975755-2 (Version None)
Quarter: 2010Q3

REPORT INFORMATION
  Report Type: 
  Country: None (occurrence: None)
  Receive Date: 20100910
  Receipt Date: 20090401
  Transmission Date: 20110219
  Serious: No
  Sender: FDA-Public Use
  Company Number: US-WYE-H08793109

PATIENT
  Sex: Female

DRUGS (5)
  1. PRISTIQ [Suspect]
     Indication: DEPRESSION
     Route: 048
     Dates: start: 20090301
  2. LANTUS [Concomitant]
  3. NOVOLOG [Concomitant]
  4. SPIRONOLACTONE [Concomitant]
  5. LISINOPRIL [Concomitant]

REACTIONS (1)
  - ANORGASMIA [None]
